FAERS Safety Report 8424256-3 (Version None)
Quarter: 2012Q2

REPORT INFORMATION
  Report Type: 
  Country: None (occurrence: None)
  Receive Date: 20120608
  Receipt Date: 20111118
  Transmission Date: 20120825
  Serious: No
  Sender: FDA-Public Use
  Company Number: US-ASTRAZENECA-2011SE63870

PATIENT
  Age: 76 Year
  Sex: Female
  Weight: 86.2 kg

DRUGS (5)
  1. NEURONTIN [Concomitant]
     Indication: SPINAL COLUMN STENOSIS
  2. NORVASC [Concomitant]
  3. PULMICORT FLEXHALER [Suspect]
     Indication: ASTHMA
     Dosage: 180 MCG THREE PUFFS EVERY DAY
     Route: 055
  4. MICARDIS [Concomitant]
     Indication: BLOOD PRESSURE ABNORMAL
  5. TUSSIONEX [Concomitant]
     Indication: ARTHRITIS

REACTIONS (3)
  - INCORRECT DOSE ADMINISTERED [None]
  - MALAISE [None]
  - ADVERSE DRUG REACTION [None]
